FAERS Safety Report 17409992 (Version 1)
Quarter: 2020Q1

REPORT INFORMATION
  Report Type: Spontaneous
  Country: US (occurrence: US)
  Receive Date: 20200212
  Receipt Date: 20200212
  Transmission Date: 20200409
  Serious: Yes (Other)
  Sender: FDA-Public Use
  Company Number: US-PFIZER INC-2019421127

PATIENT
  Age: 75 Year
  Sex: Female
  Weight: 59.87 kg

DRUGS (2)
  1. VFEND [Suspect]
     Active Substance: VORICONAZOLE
     Indication: MYELOPROLIFERATIVE NEOPLASM
     Dosage: 300 MG, UNK
     Dates: start: 20190926
  2. VFEND [Suspect]
     Active Substance: VORICONAZOLE
     Indication: ANTI-INFECTIVE THERAPY
     Dosage: 3 DF, 2X/DAY [1.5 PILLS IN THE MORNING AND 1.5 PILLS IN THE EVENING]
     Route: 048

REACTIONS (7)
  - Malaise [Unknown]
  - Gastric disorder [Unknown]
  - Product use in unapproved indication [Unknown]
  - Weight decreased [Unknown]
  - Anaemia [Unknown]
  - Off label use [Unknown]
  - Decreased appetite [Unknown]

NARRATIVE: CASE EVENT DATE: 20190926
